FAERS Safety Report 6549065-1 (Version None)
Quarter: 2010Q1

REPORT INFORMATION
  Report Type: 
  Country: None (occurrence: None)
  Receive Date: 20100125
  Receipt Date: 20100118
  Transmission Date: 20100710
  Serious: Yes (Other)
  Sender: FDA-Public Use
  Company Number: FR-ROCHE-675696

PATIENT
  Sex: Male
  Weight: 79 kg

DRUGS (10)
  1. TAMIFLU [Suspect]
     Route: 048
     Dates: start: 20091211, end: 20091216
  2. SINTROM [Suspect]
     Indication: THROMBOSIS PROPHYLAXIS
     Dosage: DOSE: 3/4
     Route: 048
     Dates: start: 20010101
  3. RHINOFLUIMUCIL [Concomitant]
  4. DOLIPRANE [Concomitant]
     Indication: INFLUENZA
     Route: 048
     Dates: start: 20091211, end: 20091216
  5. MONOZECLAR [Concomitant]
     Indication: INFLUENZA
     Route: 048
     Dates: start: 20091211, end: 20091216
  6. RESPILENE [Concomitant]
  7. TRIATEC [Concomitant]
     Dosage: DRUG: TRIATEC 10
     Route: 048
     Dates: start: 20010101
  8. LASILIX [Concomitant]
     Dosage: DRUG NAME: LASILIX 20
     Route: 048
     Dates: start: 20010101
  9. ANTIVITAMIN K [Concomitant]
  10. HALDOL [Concomitant]
     Route: 048
     Dates: start: 20010101

REACTIONS (2)
  - INTERNATIONAL NORMALISED RATIO INCREASED [None]
  - PROTHROMBIN TIME SHORTENED [None]
